FAERS Safety Report 23862356 (Version 1)
Quarter: 2024Q2

REPORT INFORMATION
  Report Type: Report from Study
  Country: US (occurrence: US)
  Receive Date: 20240516
  Receipt Date: 20240516
  Transmission Date: 20240717
  Serious: Yes (Other)
  Sender: FDA-Public Use
  Company Number: US-ARGENX-2024-ARGX-US003135

PATIENT

DRUGS (3)
  1. VYVGART [Suspect]
     Active Substance: EFGARTIGIMOD ALFA-FCAB
     Indication: Product used for unknown indication
     Dosage: UNK
     Route: 042
  2. CELLCEPT [Suspect]
     Active Substance: MYCOPHENOLATE MOFETIL
     Indication: Product used for unknown indication
     Dosage: 3000 MG, DAILY
     Route: 065
  3. CELLCEPT [Suspect]
     Active Substance: MYCOPHENOLATE MOFETIL
     Dosage: 4000 MG, DAILY
     Route: 065

REACTIONS (14)
  - Myasthenia gravis [Unknown]
  - Back injury [Unknown]
  - Pain in extremity [Unknown]
  - Intervertebral disc protrusion [Unknown]
  - Arthritis [Unknown]
  - Facet joint syndrome [Unknown]
  - Pain [Unknown]
  - Tremor [Unknown]
  - Musculoskeletal stiffness [Unknown]
  - Headache [Unknown]
  - Eye irritation [Unknown]
  - Mood swings [Unknown]
  - Panic reaction [Unknown]
  - Anaemia [Unknown]

NARRATIVE: CASE EVENT DATE: 20231201
